FAERS Safety Report 13242304 (Version 1)
Quarter: 2017Q1

REPORT INFORMATION
  Report Type: Spontaneous
  Country: US (occurrence: US)
  Receive Date: 20170217
  Receipt Date: 20170217
  Transmission Date: 20170428
  Serious: Yes (Other)
  Sender: FDA-Public Use
  Company Number: US-BRISTOL-MYERS SQUIBB COMPANY-BMS-2017-011881

PATIENT
  Sex: Male

DRUGS (2)
  1. LEVOTHYROXIN [Concomitant]
     Active Substance: LEVOTHYROXINE
     Indication: PRODUCT USED FOR UNKNOWN INDICATION
     Route: 065
  2. OPDIVO [Suspect]
     Active Substance: NIVOLUMAB
     Indication: HODGKIN^S DISEASE
     Dosage: UNK UNK, Q2WK
     Route: 042

REACTIONS (7)
  - Diarrhoea [Unknown]
  - Tremor [Unknown]
  - Weight decreased [Unknown]
  - Oxygen supplementation [Unknown]
  - Pollakiuria [Unknown]
  - Nasopharyngitis [Unknown]
  - Palpitations [Unknown]
